FAERS Safety Report 16769861 (Version 6)
Quarter: 2019Q4

REPORT INFORMATION
  Report Type: Report from Study
  Country: CA (occurrence: CA)
  Receive Date: 20190904
  Receipt Date: 20191217
  Transmission Date: 20200122
  Serious: Yes (Life-Threatening, Hospitalization, Other)
  Sender: FDA-Public Use
  Company Number: CA-BEH-2019106402

PATIENT
  Age: 71 Year
  Sex: Female

DRUGS (13)
  1. BERINERT [Suspect]
     Active Substance: HUMAN C1-ESTERASE INHIBITOR
     Indication: HEREDITARY ANGIOEDEMA WITH NORMAL C1 ESTERASE INHIBITOR
     Dosage: 1500 INTERNATIONAL UNIT, BIW
     Route: 058
  2. BERINERT [Suspect]
     Active Substance: HUMAN C1-ESTERASE INHIBITOR
     Dosage: UNK
     Route: 058
  3. VITAMIN B12 [Concomitant]
     Active Substance: CYANOCOBALAMIN
     Dosage: UNK, PRN
  4. BERINERT [Suspect]
     Active Substance: HUMAN C1-ESTERASE INHIBITOR
     Indication: HEREDITARY ANGIOEDEMA WITH NORMAL C1 ESTERASE INHIBITOR
     Dosage: 1500 INTERNATIONAL UNIT, BIW
     Route: 058
  5. BERINERT [Suspect]
     Active Substance: HUMAN C1-ESTERASE INHIBITOR
     Dosage: 3000 INTERNATIONAL UNIT, BIW
     Route: 058
  6. VITAMIN D [COLECALCIFEROL] [Concomitant]
     Active Substance: CHOLECALCIFEROL
     Dosage: ON-DEMAND, PRN
  7. CALCIUM [Concomitant]
     Active Substance: CALCIUM
     Dosage: ON-DEMAND, PRN
  8. ZOPLICONE [Concomitant]
     Active Substance: ZOPICLONE
     Dosage: ON-DEMAND, PRN
  9. SUMATRIPTAN. [Concomitant]
     Active Substance: SUMATRIPTAN
     Dosage: ON-DEMAND, PRN
  10. BERINERT [Suspect]
     Active Substance: HUMAN C1-ESTERASE INHIBITOR
     Dosage: 3000 INTERNATIONAL UNIT, BIW
     Route: 058
  11. VESICARE [Concomitant]
     Active Substance: SOLIFENACIN SUCCINATE
  12. BERINERT [Suspect]
     Active Substance: HUMAN C1-ESTERASE INHIBITOR
     Dosage: UNK
     Route: 058
  13. VITAMIN C [Concomitant]
     Active Substance: ASCORBIC ACID
     Dosage: UNK, PRN

REACTIONS (20)
  - No adverse event [Unknown]
  - Diarrhoea [Recovered/Resolved with Sequelae]
  - Nausea [Recovered/Resolved]
  - Splenomegaly [Not Recovered/Not Resolved]
  - Intentional product use issue [Unknown]
  - Product use in unapproved indication [Unknown]
  - Hereditary angioedema [Recovered/Resolved with Sequelae]
  - Hereditary angioedema [Recovered/Resolved]
  - Vomiting [Recovered/Resolved]
  - Chest pain [Not Recovered/Not Resolved]
  - Back pain [Not Recovered/Not Resolved]
  - Vomiting [Recovered/Resolved with Sequelae]
  - Pain [Recovered/Resolved with Sequelae]
  - Pain [Recovered/Resolved]
  - Hereditary angioedema [Recovered/Resolved]
  - Off label use [Unknown]
  - Splenic marginal zone lymphoma [Not Recovered/Not Resolved]
  - Product prescribing issue [Unknown]
  - Hereditary angioedema [Recovered/Resolved]
  - Diarrhoea [Recovered/Resolved]

NARRATIVE: CASE EVENT DATE: 201906
